FAERS Safety Report 10223844 (Version 1)
Quarter: 2014Q2

REPORT INFORMATION
  Report Type: Spontaneous
  Country: DE (occurrence: DE)
  Receive Date: 20140609
  Receipt Date: 20140609
  Transmission Date: 20141212
  Serious: Yes (Other)
  Sender: FDA-Public Use
  Company Number: DE-RANBAXY-2014RR-81865

PATIENT
  Age: 76 Year
  Sex: Male

DRUGS (4)
  1. CIPRO BASICS 500MG FILMTABLETTEN [Suspect]
     Indication: RENAL DISORDER
     Dosage: TWICE DAILY
     Route: 065
  2. VERAPAMIL [Concomitant]
     Indication: PRODUCT USED FOR UNKNOWN INDICATION
     Dosage: UNK
     Route: 065
  3. ASPIRIN [Concomitant]
     Indication: PRODUCT USED FOR UNKNOWN INDICATION
     Dosage: UNK
     Route: 065
  4. CORTISONE [Concomitant]
     Indication: PRODUCT USED FOR UNKNOWN INDICATION
     Dosage: UNK
     Route: 065

REACTIONS (3)
  - Tendonitis [Unknown]
  - Contusion [Unknown]
  - Muscle rupture [Unknown]
